FAERS Safety Report 7959500-X (Version None)
Quarter: 2011Q4

REPORT INFORMATION
  Report Type: 
  Country: None (occurrence: None)
  Receive Date: 20111206
  Receipt Date: 20111128
  Transmission Date: 20120403
  Serious: Yes (Hospitalization)
  Sender: FDA-Public Use
  Company Number: JP-ROCHE-1017854

PATIENT
  Age: 68 Year
  Sex: Male

DRUGS (5)
  1. LEVOLEUCOVORIN CALCIUM [Concomitant]
     Indication: LARGE INTESTINE CARCINOMA
     Dosage: DOSAGE IS UNCERTAIN.
     Route: 041
     Dates: start: 20111117
  2. AVASTIN [Suspect]
     Indication: LARGE INTESTINE CARCINOMA
     Dosage: UNCERTAIN DOSAGE AND ONE COURSE ADMINISTERING
     Route: 041
     Dates: start: 20111117
  3. FLUOROURACIL [Concomitant]
     Indication: LARGE INTESTINE CARCINOMA
     Dosage: DOSAGE IS UNCERTAIN.
     Route: 040
     Dates: start: 20111117
  4. FLUOROURACIL [Concomitant]
     Dosage: DOSAGE IS UNCERTAIN.
     Route: 041
     Dates: start: 20111117
  5. IRINOTECAN HCL [Suspect]
     Indication: LARGE INTESTINE CARCINOMA
     Dosage: DOSAGE IS UNCERTAIN.
     Route: 041
     Dates: start: 20111117

REACTIONS (1)
  - INTERSTITIAL LUNG DISEASE [None]
